FAERS Safety Report 6642975-6 (Version None)
Quarter: 2010Q1

REPORT INFORMATION
  Report Type: 
  Country: None (occurrence: None)
  Receive Date: 20100319
  Receipt Date: 20100312
  Transmission Date: 20100710
  Serious: Yes (Other)
  Sender: FDA-Public Use
  Company Number: A0816080A

PATIENT
  Age: 61 Year
  Sex: Female
  Weight: 59.1 kg

DRUGS (5)
  1. LAMICTAL CD [Suspect]
     Indication: CONVULSION
     Dosage: 200MG TWICE PER DAY
     Route: 048
  2. LAMOTRIGINE [Suspect]
     Indication: CONVULSION
     Dosage: 200MG TWICE PER DAY
     Route: 048
     Dates: start: 20091001
  3. KEPPRA [Concomitant]
     Dosage: 1250MG TWICE PER DAY
     Route: 065
  4. LYRICA [Concomitant]
     Dosage: 75MG TWICE PER DAY
     Route: 065
  5. ASPIRIN [Concomitant]

REACTIONS (12)
  - ALTERED STATE OF CONSCIOUSNESS [None]
  - CEREBROVASCULAR ACCIDENT [None]
  - CONFUSIONAL STATE [None]
  - CONVULSION [None]
  - DIZZINESS [None]
  - DRUG INEFFECTIVE [None]
  - DYSKINESIA [None]
  - FATIGUE [None]
  - FEELING ABNORMAL [None]
  - FEELING COLD [None]
  - HYPOAESTHESIA [None]
  - PRODUCT SUBSTITUTION ISSUE [None]
